FAERS Safety Report 21480943 (Version 4)
Quarter: 2024Q3

REPORT INFORMATION
  Report Type: Spontaneous
  Country: US (occurrence: US)
  Receive Date: 20221019
  Receipt Date: 20240912
  Transmission Date: 20241016
  Serious: Yes (Hospitalization)
  Sender: PFIZER
  Company Number: US-PFIZER INC-202201236824

PATIENT
  Age: 75 Year
  Sex: Female
  Weight: 71.655 kg

DRUGS (4)
  1. TIKOSYN [Suspect]
     Active Substance: DOFETILIDE
     Indication: Aortic valve replacement
     Dosage: UNK
     Dates: start: 2016, end: 20220920
  2. TIKOSYN [Suspect]
     Active Substance: DOFETILIDE
     Dosage: 500 UG, 2X/DAY
     Dates: start: 20220920
  3. TIKOSYN [Suspect]
     Active Substance: DOFETILIDE
     Dosage: 2.5 TWICE A DAY
     Dates: start: 20220920, end: 2022
  4. COUMADIN [Concomitant]
     Active Substance: WARFARIN SODIUM
     Dosage: 2.5 BALANCE DAYS/3.75 MON TO FRI
     Dates: start: 2017

REACTIONS (7)
  - Vertigo [Recovered/Resolved]
  - Hypotension [Unknown]
  - Balance disorder [Not Recovered/Not Resolved]
  - Dizziness [Not Recovered/Not Resolved]
  - Gait disturbance [Not Recovered/Not Resolved]
  - Weight increased [Unknown]
  - Spider vein [Unknown]

NARRATIVE: CASE EVENT DATE: 20160101
